FAERS Safety Report 7117493-1 (Version None)
Quarter: 2010Q4

REPORT INFORMATION
  Report Type: 
  Country: None (occurrence: None)
  Receive Date: 20101122
  Receipt Date: 20101117
  Transmission Date: 20110411
  Serious: Yes (Other)
  Sender: FDA-Public Use
  Company Number: BR-PFIZER INC-2010140732

PATIENT
  Age: 55 Year
  Sex: Female
  Weight: 63 kg

DRUGS (7)
  1. CHAMPIX [Suspect]
     Indication: TOBACCO USER
     Dosage: UNK
     Route: 048
     Dates: start: 20101018
  2. CHAMPIX [Suspect]
     Dosage: 1 MG, 2X/DAY
     Route: 048
  3. RAMIPRIL [Concomitant]
     Indication: HYPERTENSION
     Dosage: 5MG
  4. NATRILIX [Concomitant]
     Indication: HYPERTENSION
     Dosage: 5 MG, 1X/DAY IN THE MORNING
  5. VITAMIN E [Concomitant]
     Indication: BREAST DYSPLASIA
     Dosage: UNK
  6. SIMVASTATIN [Concomitant]
     Indication: BLOOD CHOLESTEROL INCREASED
     Dosage: 20 MG, 1X/DAY
  7. OMEPRAZOLE [Suspect]
     Indication: GASTRITIS
     Dosage: 20MG

REACTIONS (9)
  - BLOOD PRESSURE INCREASED [None]
  - CRYING [None]
  - DEPRESSION [None]
  - EMOTIONAL DISORDER [None]
  - INCREASED APPETITE [None]
  - INSOMNIA [None]
  - POLYDIPSIA [None]
  - UNEVALUABLE EVENT [None]
  - WEIGHT INCREASED [None]
